FAERS Safety Report 14775548 (Version 1)
Quarter: 2018Q2

REPORT INFORMATION
  Report Type: Spontaneous
  Country: US (occurrence: US)
  Receive Date: 20180418
  Receipt Date: 20180418
  Transmission Date: 20180711
  Serious: Yes (Death, Other)
  Sender: FDA-Public Use
  Company Number: US-BRISTOL-MYERS SQUIBB COMPANY-BMS-2018-035721

PATIENT
  Age: 69 Year
  Sex: Male

DRUGS (2)
  1. OPDIVO [Suspect]
     Active Substance: NIVOLUMAB
     Indication: ENDOCRINE NEOPLASM
     Dosage: 83 MG, Q3WK
     Route: 042
     Dates: start: 20180209, end: 20180307
  2. YERVOY [Suspect]
     Active Substance: IPILIMUMAB
     Indication: ENDOCRINE NEOPLASM
     Dosage: 248 MG, Q3WK
     Route: 042
     Dates: start: 20180209, end: 20180307

REACTIONS (2)
  - Product use in unapproved indication [Unknown]
  - Malignant neoplasm progression [Fatal]

NARRATIVE: CASE EVENT DATE: 20180328
